FAERS Safety Report 18325153 (Version 1)
Quarter: 2020Q3

REPORT INFORMATION
  Report Type: Report from Study
  Country: NO (occurrence: NO)
  Receive Date: 20200929
  Receipt Date: 20200929
  Transmission Date: 20201103
  Serious: Yes (Hospitalization, Other)
  Sender: FDA-Public Use
  Company Number: NVSC2020NO248130

PATIENT
  Age: 84 Year
  Sex: Male

DRUGS (3)
  1. ELIQUIS [Concomitant]
     Active Substance: APIXABAN
     Indication: ATRIAL FIBRILLATION
     Dosage: 2.5 MG, BID
     Route: 065
     Dates: start: 20191015, end: 20200902
  2. TAFINLAR [Suspect]
     Active Substance: DABRAFENIB MESYLATE
     Indication: PRODUCT USED FOR UNKNOWN INDICATION
     Dosage: 100 MG, BID
     Route: 048
     Dates: start: 20190928
  3. MEKINIST [Suspect]
     Active Substance: TRAMETINIB DIMETHYL SULFOXIDE
     Indication: PRODUCT USED FOR UNKNOWN INDICATION
     Dosage: 1.5 MG, QD
     Route: 048
     Dates: start: 20190928

REACTIONS (7)
  - Gastrointestinal haemorrhage [Recovered/Resolved]
  - Haematochezia [Not Recovered/Not Resolved]
  - Haemoglobin decreased [Recovered/Resolved]
  - Melaena [Recovered/Resolved]
  - Syncope [Recovered/Resolved]
  - Dizziness [Recovered/Resolved]
  - Oesophagitis [Unknown]

NARRATIVE: CASE EVENT DATE: 20200902
